FAERS Safety Report 14676404 (Version 3)
Quarter: 2018Q3

REPORT INFORMATION
  Report Type: Report from Study
  Country: US (occurrence: US)
  Receive Date: 20180323
  Receipt Date: 20180720
  Transmission Date: 20181010
  Serious: Yes (Hospitalization, Other)
  Sender: FDA-Public Use
  Company Number: US-BRISTOL-MYERS SQUIBB COMPANY-BMS-2018-025463

PATIENT
  Age: 60 Year
  Sex: Male

DRUGS (1)
  1. NIVOLUMAB [Suspect]
     Active Substance: NIVOLUMAB
     Indication: RENAL CELL CARCINOMA
     Dosage: 240 MG, Q2WK
     Route: 042
     Dates: start: 201512

REACTIONS (17)
  - Depressed mood [Unknown]
  - Disturbance in attention [Unknown]
  - Poor quality sleep [Unknown]
  - Mood swings [Unknown]
  - Loss of libido [Unknown]
  - Hospitalisation [Unknown]
  - Rash [Recovered/Resolved]
  - Amnesia [Unknown]
  - Lung neoplasm [Unknown]
  - Stomatitis [Unknown]
  - Pruritus [Not Recovered/Not Resolved]
  - Fatigue [Unknown]
  - Anxiety [Unknown]
  - Headache [Unknown]
  - Irritability [Unknown]
  - Asthenia [Unknown]
  - Wheezing [Unknown]

NARRATIVE: CASE EVENT DATE: 20161201
